FAERS Safety Report 9920777 (Version 1)
Quarter: 2014Q1

REPORT INFORMATION
  Report Type: Spontaneous
  Country: GB (occurrence: GB)
  Receive Date: 20140224
  Receipt Date: 20140224
  Transmission Date: 20141002
  Serious: Yes (Other)
  Sender: FDA-Public Use
  Company Number: GB-MYLANLABS-2014S1003033

PATIENT
  Age: 63 Year
  Sex: Male
  Weight: 95 kg

DRUGS (6)
  1. AZATHIOPRINE [Suspect]
     Indication: ARTHRITIS
     Route: 048
     Dates: start: 20120501
  2. PREDNISOLONE [Concomitant]
     Dosage: STARTED 60MG/DAY, REDUCING BY 5MG/MONTH, THEN BY 1MG/MONTH TO 3MG/DAY
  3. ADCAL D3 [Concomitant]
  4. OMEPRAZOLE [Concomitant]
  5. SIMVASTATIN [Concomitant]
  6. ASPIRIN [Concomitant]

REACTIONS (4)
  - Fatigue [Not Recovered/Not Resolved]
  - Mental disability [Not Recovered/Not Resolved]
  - Myalgia [Not Recovered/Not Resolved]
  - Feeling abnormal [Not Recovered/Not Resolved]
